FAERS Safety Report 10423015 (Version 1)
Quarter: 2014Q3

REPORT INFORMATION
  Report Type: Report from Study
  Country: BR (occurrence: BR)
  Receive Date: 20140902
  Receipt Date: 20140902
  Transmission Date: 20150326
  Serious: Yes (Hospitalization)
  Sender: FDA-Public Use
  Company Number: PHHY2014BR109770

PATIENT
  Sex: Male
  Weight: 90 kg

DRUGS (6)
  1. PREDNISONE. [Suspect]
     Active Substance: PREDNISONE
     Dosage: 1 DF, UNK
  2. PREDNISONE. [Suspect]
     Active Substance: PREDNISONE
     Dosage: 1.5 DF, UNK
  3. FORASEQ [Suspect]
     Active Substance: BUDESONIDE\FORMOTEROL FUMARATE
     Indication: CHRONIC OBSTRUCTIVE PULMONARY DISEASE
     Dosage: 2 DF, BID [2 TABLETS (AT UNSPECIFIED MOMENT) AND 2 TABLETS AT NIGHT]
     Route: 055
     Dates: start: 201401, end: 20140819
  4. PREDNISONE. [Suspect]
     Active Substance: PREDNISONE
     Indication: RHEUMATIC DISORDER
     Dosage: 2 DF, UNK
     Dates: start: 201312
  5. SPIRIVA [Suspect]
     Active Substance: TIOTROPIUM BROMIDE MONOHYDRATE
     Indication: CHRONIC OBSTRUCTIVE PULMONARY DISEASE
     Dosage: 2 DF, A DAY
     Route: 055
     Dates: start: 201401
  6. RIVOTRIL [Concomitant]
     Active Substance: CLONAZEPAM
     Indication: NEUROSIS
     Dosage: 2 UKN, UNK

REACTIONS (4)
  - Weight increased [Recovering/Resolving]
  - Fatigue [Recovering/Resolving]
  - Dyspnoea [Recovering/Resolving]
  - Drug ineffective [Recovering/Resolving]
